FAERS Safety Report 4404255-9 (Version None)
Quarter: 2004Q3

REPORT INFORMATION
  Report Type: 
  Country: None (occurrence: None)
  Receive Date: 20040720
  Receipt Date: 20040701
  Transmission Date: 20050211
  Serious: Yes (Death)
  Sender: FDA-Public Use
  Company Number: J081-002-001673

PATIENT
  Age: 87 Year
  Sex: Female

DRUGS (8)
  1. ARICEPT [Suspect]
     Indication: DEMENTIA ALZHEIMER'S TYPE
     Dosage: 5 MG, 1 IN 1 D, ORAL
     Route: 048
     Dates: start: 20021006, end: 20040604
  2. NISUTADIL (NICARDIPINE HYDROCHLORIDE) [Concomitant]
  3. ALDACTONE [Concomitant]
  4. ISONITOLL (ISOSORBIDE MONONITRATE) [Concomitant]
  5. ADALAT [Concomitant]
  6. PLATIBIT (ALFACALCIDOL) [Concomitant]
  7. TIEKAPTO (CIMETIDINE) [Concomitant]
  8. ELCITONIN (ELCATONIN) [Concomitant]

REACTIONS (4)
  - CARDIAC ARREST [None]
  - LOSS OF CONSCIOUSNESS [None]
  - MYOCARDIAL INFARCTION [None]
  - RESPIRATORY ARREST [None]
